APPROVED DRUG PRODUCT: SALURON
Active Ingredient: HYDROFLUMETHIAZIDE
Strength: 50MG
Dosage Form/Route: TABLET;ORAL
Application: N011949 | Product #001
Applicant: SHIRE DEVELOPMENT LLC
Approved: Approved Prior to Jan 1, 1982 | RLD: Yes | RS: No | Type: DISCN